FAERS Safety Report 9416246 (Version 1)
Quarter: 2013Q3

REPORT INFORMATION
  Report Type: Spontaneous
  Country: US (occurrence: None)
  Receive Date: 20130723
  Receipt Date: 20130723
  Transmission Date: 20140515
  Serious: No
  Sender: FDA-Public Use
  Company Number: None

PATIENT
  Age: 32 Year
  Sex: Female
  Weight: 86.64 kg

DRUGS (1)
  1. MEDROXYPROGESTERONE [Suspect]
     Indication: CONTRACEPTION
     Route: 030
     Dates: start: 20130718

REACTIONS (8)
  - Tremor [None]
  - Fatigue [None]
  - Nausea [None]
  - Dysarthria [None]
  - Memory impairment [None]
  - Tachycardia [None]
  - Feeling abnormal [None]
  - Myalgia [None]
